FAERS Safety Report 9287649 (Version 2)
Quarter: 2013Q2

REPORT INFORMATION
  Report Type: Spontaneous
  Country: JP (occurrence: JP)
  Receive Date: 20130514
  Receipt Date: 20130520
  Transmission Date: 20140414
  Serious: Yes (Other)
  Sender: FDA-Public Use
  Company Number: PHHY2013JP046660

PATIENT
  Age: 38 Year
  Sex: Female

DRUGS (4)
  1. CICLOSPORIN [Suspect]
     Indication: RENAL TRANSPLANT
  2. BASILIXIMAB [Suspect]
     Indication: RENAL TRANSPLANT
     Route: 042
  3. MYCOPHENOLATE MOFETIL [Concomitant]
  4. PREDNISOLONE [Concomitant]

REACTIONS (5)
  - Large intestine perforation [Unknown]
  - Nausea [Unknown]
  - Vomiting [Unknown]
  - Pyrexia [Unknown]
  - Abdominal pain [Unknown]
